FAERS Safety Report 21477511 (Version 1)
Quarter: 2022Q4

REPORT INFORMATION
  Report Type: Spontaneous
  Country: US (occurrence: None)
  Receive Date: 20221018
  Receipt Date: 20221018
  Transmission Date: 20230113
  Serious: Yes (Other)
  Sender: FDA-Public Use
  Company Number: None

PATIENT
  Age: 35 Year
  Sex: Female

DRUGS (1)
  1. H.P. ACTHAR [Suspect]
     Active Substance: CORTICOTROPIN
     Dosage: FREQUENCY : DAILY;?
     Route: 030

REACTIONS (12)
  - Dyspepsia [None]
  - Gastrooesophageal reflux disease [None]
  - Faeces discoloured [None]
  - Melaena [None]
  - Anaemia [None]
  - Nausea [None]
  - Diarrhoea [None]
  - Abdominal pain upper [None]
  - Abdominal pain upper [None]
  - Dizziness [None]
  - Blood pressure fluctuation [None]
  - Uterine leiomyoma [None]

NARRATIVE: CASE EVENT DATE: 20220601
